FAERS Safety Report 8806750 (Version 1)
Quarter: 2012Q4

REPORT INFORMATION
  Report Type: 
  Country: US (occurrence: US)
  Receive Date: 20120925
  Receipt Date: 20120925
  Transmission Date: 20130627
  Serious: Yes (Death)
  Sender: FDA-Public Use
  Company Number: US-ACTELION-A-US2012-71594

PATIENT
  Age: 9 Month
  Sex: Male

DRUGS (4)
  1. TRACLEER [Suspect]
     Indication: PULMONARY ARTERIAL HYPERTENSION
     Dosage: UNK
     Route: 048
     Dates: end: 20120906
  2. OXYGEN [Concomitant]
  3. ZANTAC [Concomitant]
  4. RANITIDINE [Concomitant]

REACTIONS (1)
  - Cardio-respiratory arrest [Fatal]
